FAERS Safety Report 5925492-8 (Version None)
Quarter: 2008Q4

REPORT INFORMATION
  Report Type: 
  Country: None (occurrence: None)
  Receive Date: 20081021
  Receipt Date: 20081009
  Transmission Date: 20090506
  Serious: Yes (Hospitalization, Disabling)
  Sender: FDA-Public Use
  Company Number: PHHY2008LU19049

PATIENT
  Age: 54 Year
  Sex: Female

DRUGS (6)
  1. ZOMETA [Suspect]
     Indication: METASTASES TO BONE
     Dosage: 4 MG EVERY 4 WEEKS
  2. NOLVADEX [Concomitant]
     Dosage: UNK
  3. ARIMIDEX [Concomitant]
     Dosage: UNK
  4. FASLODEX [Concomitant]
     Dosage: UNK
  5. CHEMOTHERAPEUTICS NOS [Concomitant]
  6. RADIOTHERAPY [Concomitant]

REACTIONS (9)
  - BLOOD 25-HYDROXYCHOLECALCIFEROL DECREASED [None]
  - BONE DISORDER [None]
  - BONE LESION [None]
  - CREATININE RENAL CLEARANCE DECREASED [None]
  - FEMUR FRACTURE [None]
  - FOOT FRACTURE [None]
  - IMPAIRED HEALING [None]
  - PROCOLLAGEN TYPE I C-TERMINAL PROPEPTIDE INCREASED [None]
  - PROTEIN URINE PRESENT [None]
